FAERS Safety Report 20936421 (Version 4)
Quarter: 2023Q4

REPORT INFORMATION
  Report Type: Report from Study
  Country: ES (occurrence: None)
  Receive Date: 20220609
  Receipt Date: 20231012
  Transmission Date: 20240109
  Serious: Yes (Life-Threatening, Hospitalization)
  Sender: FDA-Public Use
  Company Number: ES-ROCHE-3112755

PATIENT
  Age: 66 Year
  Sex: Male

DRUGS (10)
  1. VENETOCLAX [Suspect]
     Active Substance: VENETOCLAX
     Indication: Chronic lymphocytic leukaemia
     Route: 048
     Dates: start: 20211102, end: 20220525
  2. OBINUTUZUMAB [Suspect]
     Active Substance: OBINUTUZUMAB
     Indication: Chronic lymphocytic leukaemia
     Route: 042
     Dates: start: 20211011, end: 20220315
  3. POLARAMINE [Concomitant]
     Active Substance: DEXCHLORPHENIRAMINE MALEATE
  4. PAROXETINE [Concomitant]
     Active Substance: PAROXETINE
  5. SILODOSIN [Concomitant]
     Active Substance: SILODOSIN
  6. ATORVASTATIN [Concomitant]
     Active Substance: ATORVASTATIN
  7. ENALAPRIL [Concomitant]
     Active Substance: ENALAPRIL
  8. ASPIRIN [Concomitant]
     Active Substance: ASPIRIN
  9. OMEPRAZOLE [Concomitant]
     Active Substance: OMEPRAZOLE
  10. TERBUTALINE SULFATE [Concomitant]
     Active Substance: TERBUTALINE SULFATE

REACTIONS (3)
  - Bile duct stone [Not Recovered/Not Resolved]
  - Jaundice cholestatic [Not Recovered/Not Resolved]
  - Cholangitis acute [Recovered/Resolved]

NARRATIVE: CASE EVENT DATE: 20220526
